FAERS Safety Report 8522302-X (Version None)
Quarter: 2012Q3

REPORT INFORMATION
  Report Type: 
  Country: None (occurrence: None)
  Receive Date: 20120709
  Receipt Date: 20120703
  Transmission Date: 20120928
  Serious: Yes (Hospitalization)
  Sender: FDA-Public Use
  Company Number: DSA_57332_2012

PATIENT
  Sex: Male
  Weight: 63.5036 kg

DRUGS (8)
  1. NAMENDA [Concomitant]
  2. LACTULOSE [Suspect]
     Indication: CONSTIPATION
     Dosage: (DF ORAL)
     Route: 048
     Dates: start: 20120501
  3. XENAZINE [Suspect]
     Indication: HUNTINGTON'S DISEASE
     Dosage: (12.5 MG BID ORAL), (12.5 MG QD ORAL)
     Route: 048
     Dates: start: 20120425
  4. XENAZINE [Suspect]
     Indication: HUNTINGTON'S DISEASE
     Dosage: (12.5 MG BID ORAL), (12.5 MG QD ORAL)
     Route: 048
     Dates: start: 20120411, end: 20120424
  5. PAXIL CR [Concomitant]
  6. LORAZEPAM [Concomitant]
  7. OLANZAPINE [Concomitant]
  8. BUSPAR [Concomitant]

REACTIONS (5)
  - FAECALOMA [None]
  - NAUSEA [None]
  - VOMITING [None]
  - NO THERAPEUTIC RESPONSE [None]
  - CHOLELITHIASIS [None]
